FAERS Safety Report 6690809-6 (Version None)
Quarter: 2010Q2

REPORT INFORMATION
  Report Type: 
  Country: None (occurrence: None)
  Receive Date: 20100421
  Receipt Date: 20100409
  Transmission Date: 20101027
  Serious: Yes (Hospitalization)
  Sender: FDA-Public Use
  Company Number: DE-CUBIST-2010S1000194

PATIENT
  Age: 64 Year
  Sex: Male
  Weight: 87 kg

DRUGS (3)
  1. DAPTOMYCIN [Suspect]
     Indication: INFECTION PROPHYLAXIS
     Route: 042
     Dates: start: 20090918, end: 20090918
  2. DAPTOMYCIN [Suspect]
     Route: 042
     Dates: start: 20090918, end: 20090918
  3. CEFUROXIME [Concomitant]
     Indication: INFECTION PROPHYLAXIS

REACTIONS (2)
  - ATRIAL FIBRILLATION [None]
  - TACHYCARDIA [None]
